FAERS Safety Report 4943918-3 (Version None)
Quarter: 2006Q1

REPORT INFORMATION
  Report Type: 
  Country: None (occurrence: None)
  Receive Date: 20060313
  Receipt Date: 20060313
  Transmission Date: 20060701
  Serious: Yes (Hospitalization)
  Sender: FDA-Public Use
  Company Number: None

PATIENT
  Age: 52 Year
  Sex: Female
  Weight: 70.7611 kg

DRUGS (4)
  1. IBUPROFEN [Suspect]
     Indication: ARTHRITIS
     Dosage: 1600-2400MG AT BEDTIME
  2. ETODOLAC [Suspect]
     Indication: ARTHRITIS
     Dosage: 300MG BID
  3. LISINOPRIL [Suspect]
  4. HYDROCHLOROTHIAZIDE [Suspect]

REACTIONS (3)
  - BLOOD PRESSURE DECREASED [None]
  - RENAL FAILURE ACUTE [None]
  - URINARY TRACT INFECTION [None]
